FAERS Safety Report 7203128-6 (Version None)
Quarter: 2010Q4

REPORT INFORMATION
  Report Type: 
  Country: None (occurrence: None)
  Receive Date: 20101229
  Receipt Date: 20101217
  Transmission Date: 20110411
  Serious: Yes (Other)
  Sender: FDA-Public Use
  Company Number: JP-GILEAD-E2B_00001001

PATIENT
  Age: 63 Year
  Sex: Male

DRUGS (2)
  1. HEPSERA [Suspect]
     Indication: PRODUCT USED FOR UNKNOWN INDICATION
     Dosage: 10MG PER DAY
     Route: 048
     Dates: start: 20060101
  2. NEO-MINOPHAGEN C [Concomitant]
     Dosage: 40ML TWO TIMES PER WEEK
     Route: 042

REACTIONS (2)
  - AORTIC DISSECTION [None]
  - RENAL FAILURE [None]
